FAERS Safety Report 8604678-8 (Version None)
Quarter: 2012Q3

REPORT INFORMATION
  Report Type: 
  Country: None (occurrence: None)
  Receive Date: 20120820
  Receipt Date: 20120815
  Transmission Date: 20120928
  Serious: Yes (Hospitalization)
  Sender: FDA-Public Use
  Company Number: PHHY2012AR070873

PATIENT
  Sex: Female

DRUGS (1)
  1. EXELON [Suspect]
     Indication: SENILE DEMENTIA
     Dosage: 9.5 MG, ONE PATCH DAILY
     Route: 062

REACTIONS (3)
  - HIP FRACTURE [None]
  - MOVEMENT DISORDER [None]
  - FALL [None]
